FAERS Safety Report 10143025 (Version 1)
Quarter: 2014Q2

REPORT INFORMATION
  Report Type: Spontaneous
  Country: CA (occurrence: CA)
  Receive Date: 20140430
  Receipt Date: 20140430
  Transmission Date: 20141212
  Serious: Yes (Hospitalization, Disabling, Other)
  Sender: FDA-Public Use
  Company Number: CA-PFIZER INC-2014117609

PATIENT
  Age: 42 Year
  Sex: Female
  Weight: 102 kg

DRUGS (1)
  1. CHAMPIX [Suspect]
     Dosage: UNK, 2X/DAY
     Route: 048

REACTIONS (2)
  - Epilepsy [Recovered/Resolved]
  - Partial seizures [Recovered/Resolved]
